FAERS Safety Report 25023905 (Version 5)
Quarter: 2025Q2

REPORT INFORMATION
  Report Type: Spontaneous
  Country: US (occurrence: US)
  Receive Date: 20250228
  Receipt Date: 20250505
  Transmission Date: 20250717
  Serious: No
  Sender: PFIZER
  Company Number: US-PFIZER INC-202500043598

PATIENT
  Age: 56 Year
  Sex: Male

DRUGS (1)
  1. SOMATROPIN [Suspect]
     Active Substance: SOMATROPIN
     Indication: Hormone therapy
     Dosage: 0.6 MG, EVERY NIGHT

REACTIONS (9)
  - Anxiety [Unknown]
  - Dyspnoea [Unknown]
  - Tinnitus [Unknown]
  - Insomnia [Unknown]
  - Intentional dose omission [Unknown]
  - Liquid product physical issue [Unknown]
  - Poor quality device used [Unknown]
  - Chills [Unknown]
  - Feeling cold [Unknown]
